FAERS Safety Report 10511341 (Version 1)
Quarter: 2014Q4

REPORT INFORMATION
  Report Type: Spontaneous
  Country: US (occurrence: None)
  Receive Date: 20141009
  Receipt Date: 20141009
  Transmission Date: 20150528
  Serious: Yes (Hospitalization)
  Sender: FDA-Public Use
  Company Number: None

PATIENT
  Age: 52 Year
  Sex: Female
  Weight: 97 kg

DRUGS (4)
  1. GLIMEPIRIDE. [Concomitant]
     Active Substance: GLIMEPIRIDE
  2. ADVAIR HFA INHALER [Concomitant]
  3. FARXIGA [Suspect]
     Active Substance: DAPAGLIFLOZIN PROPANEDIOL
     Indication: TYPE 2 DIABETES MELLITUS
     Dosage: ONE PILL QD ORAL
     Route: 048
     Dates: start: 20140916, end: 20141007
  4. METFORMIN [Concomitant]
     Active Substance: METFORMIN HYDROCHLORIDE

REACTIONS (6)
  - Paraesthesia [None]
  - Heart rate increased [None]
  - Dyspnoea [None]
  - Systemic inflammatory response syndrome [None]
  - Pyrexia [None]
  - Wheezing [None]

NARRATIVE: CASE EVENT DATE: 20141006
